FAERS Safety Report 8337913-4 (Version None)
Quarter: 2012Q1

REPORT INFORMATION
  Report Type: 
  Country: None (occurrence: None)
  Receive Date: 20120329
  Receipt Date: 20101207
  Transmission Date: 20120608
  Serious: Yes (Other)
  Sender: FDA-Public Use
  Company Number: PHHY2010US76197

PATIENT
  Age: 78 Year
  Sex: Female

DRUGS (3)
  1. ANTI-PARKINSON DRUGS (NO INGREDIENTS/SUBSTANCES) [Concomitant]
  2. EXELON [Suspect]
     Dosage: 4.6 MG PATCH, TRANSDERMAL, 9.5 MG PATCH, TRANSDERMAL, TRANSDERMAL
     Route: 062
  3. EXELON [Suspect]
     Dosage: 4.6 MG PATCH, TRANSDERMAL, 9.5 MG PATCH, TRANSDERMAL, TRANSDERMAL
     Route: 062

REACTIONS (3)
  - ERYTHEMA [None]
  - DIARRHOEA [None]
  - ABDOMINAL DISCOMFORT [None]
